FAERS Safety Report 21118587 (Version 1)
Quarter: 2022Q3

REPORT INFORMATION
  Report Type: Report from Study
  Country: CA (occurrence: CA)
  Receive Date: 20220722
  Receipt Date: 20220722
  Transmission Date: 20221026
  Serious: Yes (Other)
  Sender: FDA-Public Use
  Company Number: CA-BAUSCH-BL-2022-018374

PATIENT
  Age: 43 Year
  Sex: Female

DRUGS (1)
  1. RIFAXIMIN [Suspect]
     Active Substance: RIFAXIMIN
     Indication: Irritable bowel syndrome
     Route: 065

REACTIONS (1)
  - Systemic lupus erythematosus [Unknown]
